FAERS Safety Report 6321948-7 (Version None)
Quarter: 2009Q3

REPORT INFORMATION
  Report Type: 
  Country: None (occurrence: None)
  Receive Date: 20090812
  Receipt Date: 20090429
  Transmission Date: 20100115
  Serious: Yes (Life-Threatening, Disabling)
  Sender: FDA-Public Use
  Company Number: WAES 0904USA04560

PATIENT
  Age: 49 Year
  Sex: Male

DRUGS (7)
  1. ISENTRESS [Suspect]
     Indication: HIV INFECTION
     Dosage: 400 MG/BID/PO
     Route: 048
     Dates: start: 20090426, end: 20090427
  2. ADVAIR DISKUS 100/50 [Concomitant]
  3. ALDACTONE [Concomitant]
  4. MEPRON [Concomitant]
  5. SPIRIVA [Concomitant]
  6. TRUVADA [Concomitant]
  7. ZITHROMAX [Concomitant]

REACTIONS (2)
  - BLOOD CREATINE PHOSPHOKINASE INCREASED [None]
  - MUSCLE SPASMS [None]
